FAERS Safety Report 5086620-2 (Version None)
Quarter: 2006Q3

REPORT INFORMATION
  Report Type: 
  Country: None (occurrence: None)
  Receive Date: 20060703
  Receipt Date: 20050919
  Transmission Date: 20061208
  Serious: No
  Sender: FDA-Public Use
  Company Number: 2005S1009215

PATIENT
  Age: 49 Year
  Sex: Male

DRUGS (9)
  1. CLOZAPINE [Suspect]
     Indication: SCHIZOPHRENIA
     Dosage: 500 MG;QD;PO
     Route: 048
     Dates: start: 20050101
  2. FENOFIBRATE [Concomitant]
  3. VALSARTAN [Concomitant]
  4. LORATADINE [Concomitant]
  5. LOXAPINE [Concomitant]
  6. FAMOTIDINE [Concomitant]
  7. DOCUSATE SODIUM [Concomitant]
  8. OXYBUTYNIN HYDROCHLORIDE [Concomitant]
  9. VALPROATE SODIUM [Concomitant]

REACTIONS (1)
  - GRANULOCYTOPENIA [None]
